FAERS Safety Report 9458849 (Version 1)
Quarter: 2013Q3

REPORT INFORMATION
  Report Type: Spontaneous
  Country: US (occurrence: US)
  Receive Date: 20130814
  Receipt Date: 20130814
  Transmission Date: 20140515
  Serious: Yes (Disabling)
  Sender: FDA-Public Use
  Company Number: US-GLAXOSMITHKLINE-A1025564A

PATIENT
  Age: 51 Year
  Sex: Female

DRUGS (5)
  1. ADVAIR [Suspect]
     Indication: ASTHMA
     Dosage: 1PUFF TWICE PER DAY
     Route: 055
     Dates: start: 2003
  2. GABAPENTIN ENACARBIL [Suspect]
     Indication: NEUROPATHY PERIPHERAL
     Dosage: 300MG THREE TIMES PER DAY
     Route: 048
     Dates: start: 201301
  3. GABAPENTIN [Concomitant]
  4. DILTIAZEM [Concomitant]
  5. AMBIEN [Concomitant]

REACTIONS (8)
  - Neuropathy peripheral [Not Recovered/Not Resolved]
  - Hypoglycaemia [Not Recovered/Not Resolved]
  - Vision blurred [Not Recovered/Not Resolved]
  - Memory impairment [Not Recovered/Not Resolved]
  - Insomnia [Not Recovered/Not Resolved]
  - Pain in extremity [Not Recovered/Not Resolved]
  - Dysarthria [Not Recovered/Not Resolved]
  - Pain [Unknown]
